FAERS Safety Report 14677763 (Version 1)
Quarter: 2018Q1

REPORT INFORMATION
  Report Type: Spontaneous
  Country: FR (occurrence: FR)
  Receive Date: 20180325
  Receipt Date: 20180325
  Transmission Date: 20180509
  Serious: Yes (Other)
  Sender: FDA-Public Use
  Company Number: FR-MERCK KGAA-2044472

PATIENT
  Age: 37 Year
  Sex: Female

DRUGS (3)
  1. NOVOTHYROX [Suspect]
     Active Substance: LEVOTHYROXINE SODIUM
     Dates: start: 201707
  2. NOVOTHYROX [Suspect]
     Active Substance: LEVOTHYROXINE SODIUM
     Indication: HYPOTHYROIDISM
  3. NOVOTHYROX [Suspect]
     Active Substance: LEVOTHYROXINE SODIUM
     Dates: start: 201709

REACTIONS (28)
  - Anger [Recovering/Resolving]
  - Negative thoughts [Recovering/Resolving]
  - Visual impairment [Recovering/Resolving]
  - Blood thyroid stimulating hormone increased [Recovering/Resolving]
  - Abscess [Recovering/Resolving]
  - Fatigue [Recovering/Resolving]
  - Depression [Recovering/Resolving]
  - Mood altered [Recovering/Resolving]
  - Mood swings [Recovering/Resolving]
  - Neck pain [Recovering/Resolving]
  - Dyspepsia [Recovering/Resolving]
  - Fungal infection [Recovering/Resolving]
  - Disturbance in attention [Recovering/Resolving]
  - Drug ineffective [Recovering/Resolving]
  - Myalgia [Recovering/Resolving]
  - Chest pain [Recovering/Resolving]
  - Partner stress [Recovering/Resolving]
  - Crying [Recovering/Resolving]
  - Headache [Recovering/Resolving]
  - Skin disorder [Recovering/Resolving]
  - Amnesia [Recovering/Resolving]
  - Somnolence [Recovering/Resolving]
  - Lymphadenopathy [Recovering/Resolving]
  - Decreased interest [Recovering/Resolving]
  - Social avoidant behaviour [Recovering/Resolving]
  - Irritability [Recovering/Resolving]
  - Impaired driving ability [Recovering/Resolving]
  - Depressed mood [Recovering/Resolving]

NARRATIVE: CASE EVENT DATE: 2017
